FAERS Safety Report 8031175-3 (Version None)
Quarter: 2012Q1

REPORT INFORMATION
  Report Type: 
  Country: None (occurrence: None)
  Receive Date: 20120109
  Receipt Date: 20120103
  Transmission Date: 20120608
  Serious: Yes (Hospitalization)
  Sender: FDA-Public Use
  Company Number: US-ACTELION-A-US2011-57468

PATIENT

DRUGS (4)
  1. OXYGEN [Concomitant]
  2. CALCIUM CHANNEL BLOCKERS [Concomitant]
  3. TRACLEER [Suspect]
     Indication: PULMONARY ARTERIAL HYPERTENSION
     Dosage: UNK
     Route: 048
     Dates: start: 20030317
  4. COUMADIN [Concomitant]

REACTIONS (4)
  - BRONCHITIS [None]
  - NAUSEA [None]
  - VIRAL INFECTION [None]
  - GASTROENTERITIS VIRAL [None]
